FAERS Safety Report 25447057 (Version 2)
Quarter: 2025Q3

REPORT INFORMATION
  Report Type: Report from Study
  Country: US (occurrence: US)
  Receive Date: 20250617
  Receipt Date: 20250803
  Transmission Date: 20251021
  Serious: Yes (Hospitalization)
  Sender: ALEXION PHARMACEUTICALS
  Company Number: 202506USA011210US

PATIENT
  Age: 52 Year
  Sex: Female

DRUGS (1)
  1. STRENSIQ [Suspect]
     Active Substance: ASFOTASE ALFA
     Indication: Phosphorus metabolism disorder
     Dosage: 140 MILLIGRAM, TIW
     Route: 065

REACTIONS (6)
  - Nervousness [Unknown]
  - Nephrolithiasis [Unknown]
  - Osteoporosis [Not Recovered/Not Resolved]
  - Bone densitometry [Not Recovered/Not Resolved]
  - Mobility decreased [Unknown]
  - Cardiac disorder [Unknown]
